FAERS Safety Report 16509828 (Version 1)
Quarter: 2019Q3

REPORT INFORMATION
  Report Type: Spontaneous
  Country: IT (occurrence: IT)
  Receive Date: 20190702
  Receipt Date: 20190702
  Transmission Date: 20191004
  Serious: Yes (Other)
  Sender: FDA-Public Use
  Company Number: IT-TEVA-2019-IT-1071658

PATIENT
  Age: 71 Year
  Sex: Male
  Weight: 60 kg

DRUGS (6)
  1. RANITIDINE HYDROCHLORIDE. [Concomitant]
     Active Substance: RANITIDINE HYDROCHLORIDE
  2. OXALIPLATINO ACCORD HEALTHCARE [Suspect]
     Active Substance: OXALIPLATIN
     Indication: COLON CANCER
     Route: 042
     Dates: start: 20181016, end: 20190524
  3. ERBITUX [Suspect]
     Active Substance: CETUXIMAB
     Indication: COLON CANCER
     Dates: start: 20181016, end: 20190524
  4. FLUOROURACILE TEVA [Suspect]
     Active Substance: FLUOROURACIL
     Route: 040
     Dates: start: 20181016, end: 20190524
  5. DEXAMETHASONE. [Concomitant]
     Active Substance: DEXAMETHASONE
  6. FLUOROURACILE TEVA [Suspect]
     Active Substance: FLUOROURACIL
     Indication: COLON CANCER
     Route: 042
     Dates: start: 20181016, end: 20190524

REACTIONS (3)
  - Leukopenia [Recovering/Resolving]
  - Neutropenia [Recovering/Resolving]
  - Thrombocytopenia [Recovering/Resolving]

NARRATIVE: CASE EVENT DATE: 20190606
